FAERS Safety Report 14607678 (Version 2)
Quarter: 2018Q1

REPORT INFORMATION
  Report Type: Spontaneous
  Country: JP (occurrence: JP)
  Receive Date: 20180307
  Receipt Date: 20180329
  Transmission Date: 20180509
  Serious: Yes (Other)
  Sender: FDA-Public Use
  Company Number: JP-GLAXOSMITHKLINE-JP2018JPN034480

PATIENT
  Age: 35 Year
  Sex: Female

DRUGS (1)
  1. RELENZA [Suspect]
     Active Substance: ZANAMIVIR
     Indication: INFLUENZA
     Dosage: 5 MG, UNK
     Route: 055
     Dates: start: 201703, end: 201703

REACTIONS (2)
  - Stevens-Johnson syndrome [Recovered/Resolved]
  - Oculomucocutaneous syndrome [Recovered/Resolved]
